FAERS Safety Report 5647029-3 (Version None)
Quarter: 2008Q1

REPORT INFORMATION
  Report Type: 
  Country: None (occurrence: None)
  Receive Date: 20080303
  Receipt Date: 20080226
  Transmission Date: 20080703
  Serious: Yes (Other)
  Sender: FDA-Public Use
  Company Number: B0510471A

PATIENT
  Age: 21 Year
  Sex: Male

DRUGS (2)
  1. AUGMENTIN '125' [Suspect]
     Dosage: 2G PER DAY
     Route: 048
     Dates: start: 20080107, end: 20080111
  2. ACETAMINOPHEN [Suspect]
     Dosage: 5G PER DAY
     Route: 048
     Dates: start: 20080112, end: 20080115

REACTIONS (3)
  - HEPATOMEGALY [None]
  - SPLENOMEGALY [None]
  - TRANSAMINASES INCREASED [None]
